FAERS Safety Report 26000730 (Version 1)
Quarter: 2025Q4

REPORT INFORMATION
  Report Type: Spontaneous
  Country: CN (occurrence: CN)
  Receive Date: 20251105
  Receipt Date: 20251105
  Transmission Date: 20260118
  Serious: Yes (Hospitalization)
  Sender: ABBVIE
  Company Number: CN-ABBVIE-6526740

PATIENT
  Age: 39 Year
  Sex: Male
  Weight: 65 kg

DRUGS (4)
  1. VENETOCLAX [Suspect]
     Active Substance: VENETOCLAX
     Indication: Chemotherapy
     Dosage: FORM STRENGTH: 400 MILLIGRAM
     Route: 048
     Dates: start: 20251003, end: 20251009
  2. TROPISETRON HYDROCHLORIDE [Concomitant]
     Active Substance: TROPISETRON HYDROCHLORIDE
     Indication: Antiemetic supportive care
     Dosage: FORM STRENGTH: 5 MILLIGRAM
     Route: 041
     Dates: start: 20251001, end: 20251003
  3. CYTARABINE [Suspect]
     Active Substance: CYTARABINE
     Indication: Chemotherapy
     Dosage: FORM STRENGTH: 4000 MILLIGRAM
     Route: 041
     Dates: start: 20251001, end: 20251003
  4. HERBALS\DIAMMONIUM GLYCYRRHIZINATE [Concomitant]
     Active Substance: HERBALS\DIAMMONIUM GLYCYRRHIZINATE
     Indication: Prophylaxis
     Dosage: TIME INTERVAL: 0.33333333 DAYS: FORM STRENGTH: 450 MILLIGRAM, ENTERIC-COATED CAPSULES
     Route: 048
     Dates: start: 20251001, end: 20251009

REACTIONS (1)
  - Myelosuppression [Recovering/Resolving]

NARRATIVE: CASE EVENT DATE: 20251013
